FAERS Safety Report 4996630-9 (Version None)
Quarter: 2006Q2

REPORT INFORMATION
  Report Type: 
  Country: None (occurrence: None)
  Receive Date: 20060509
  Receipt Date: 20060428
  Transmission Date: 20061013
  Serious: Yes (Death)
  Sender: FDA-Public Use
  Company Number: US-JNJFOC-20060500742

PATIENT

DRUGS (1)
  1. REOPRO [Suspect]
     Indication: UNEVALUABLE EVENT
     Route: 042

REACTIONS (1)
  - RETROPERITONEAL HAEMORRHAGE [None]
